FAERS Safety Report 24883898 (Version 2)
Quarter: 2025Q1

REPORT INFORMATION
  Report Type: Spontaneous
  Country: US (occurrence: US)
  Receive Date: 20250124
  Receipt Date: 20250204
  Transmission Date: 20250409
  Serious: Yes (Other)
  Sender: APOTEX
  Company Number: US-APOTEX-2025AP001202

PATIENT
  Sex: Male

DRUGS (2)
  1. PAROXETINE [Suspect]
     Active Substance: PAROXETINE
     Indication: Depression
     Dosage: 3 DOSAGE FORM, QD
     Route: 065
  2. PAROXETINE [Suspect]
     Active Substance: PAROXETINE
     Indication: Anxiety

REACTIONS (5)
  - Cardiac flutter [Unknown]
  - Angioedema [Unknown]
  - Product substitution issue [Unknown]
  - Photosensitivity reaction [Unknown]
  - Oedema [Unknown]
